FAERS Safety Report 6725683-2 (Version None)
Quarter: 2010Q2

REPORT INFORMATION
  Report Type: 
  Country: None (occurrence: None)
  Receive Date: 20100512
  Receipt Date: 20100505
  Transmission Date: 20101027
  Serious: Yes (Other)
  Sender: FDA-Public Use
  Company Number: CAP10000148

PATIENT
  Age: 71 Year
  Sex: Female

DRUGS (5)
  1. ACTONEL [Suspect]
     Indication: OSTEOPENIA
     Dosage: 35 MG ONCE WEEKLY, ORAL
     Route: 048
     Dates: start: 20050101
  2. EFFEXOR [Concomitant]
  3. OMEPRAZOLE [Concomitant]
  4. GABAPENTIN [Concomitant]
  5. CALCIUM (CALCIUM) [Concomitant]

REACTIONS (3)
  - BREAST CANCER [None]
  - HEADACHE [None]
  - PAIN IN EXTREMITY [None]
